FAERS Safety Report 19646444 (Version 1)
Quarter: 2021Q3

REPORT INFORMATION
  Report Type: Spontaneous
  Country: RU (occurrence: RU)
  Receive Date: 20210802
  Receipt Date: 20210802
  Transmission Date: 20211014
  Serious: Yes (Other)
  Sender: FDA-Public Use
  Company Number: RU-AMGEN-RUSSP2021114214

PATIENT
  Age: 32 Year
  Sex: Female

DRUGS (12)
  1. TRASTUZUMAB. [Concomitant]
     Active Substance: TRASTUZUMAB
  2. DOXORUBICIN [Concomitant]
     Active Substance: DOXORUBICIN
     Dosage: 60 MILLIGRAMS PER SQUARE METER, 21?DAY CYCLES
  3. ENDOXAN [CYCLOPHOSPHAMIDE] [Concomitant]
     Active Substance: CYCLOPHOSPHAMIDE
  4. LETROZOLE. [Concomitant]
     Active Substance: LETROZOLE
     Dosage: 2.5 MILLIGRAM, QD
  5. XGEVA [Suspect]
     Active Substance: DENOSUMAB
     Indication: METASTASES TO BONE
     Dosage: 120 MILLIGRAM, Q4WK
     Route: 065
     Dates: start: 2017
  6. DEXAMETHASONE. [Concomitant]
     Active Substance: DEXAMETHASONE
     Dosage: 8 MILLIGRAM PER DAY
  7. CAPECITABINE. [Concomitant]
     Active Substance: CAPECITABINE
     Dosage: 2500 MILLIGRAM PER DAY, (DAYS 1?14)
  8. LAPATINIB [Concomitant]
     Active Substance: LAPATINIB
     Dosage: 1250 MILLIGRAM 1250 MILLIGRAMS PER DAY, DAILY
  9. ZOLADEX [Concomitant]
     Active Substance: GOSERELIN ACETATE
  10. DOCETAXEL. [Concomitant]
     Active Substance: DOCETAXEL
     Dosage: 154 MILLIGRAM
  11. CYCLOPHOSPHAMIDE. [Concomitant]
     Active Substance: CYCLOPHOSPHAMIDE
     Dosage: 600 MILLIGRAMS PER SQUARE METER, 21?DAY CYCLES
  12. TRASTUZUMAB EMTANSINE [Concomitant]
     Active Substance: ADO-TRASTUZUMAB EMTANSINE

REACTIONS (4)
  - HER2 positive breast cancer [Unknown]
  - Pathological fracture [Unknown]
  - Eyelid tumour [Unknown]
  - Polyneuropathy [Recovered/Resolved]

NARRATIVE: CASE EVENT DATE: 20171017
